FAERS Safety Report 4780636-9 (Version None)
Quarter: 2005Q3

REPORT INFORMATION
  Report Type: 
  Country: None (occurrence: None)
  Receive Date: 20050914
  Receipt Date: 20040721
  Transmission Date: 20060218
  Serious: Yes (Other)
  Sender: FDA-Public Use
  Company Number: 163-20785-04070507

PATIENT
  Age: 63 Year
  Sex: Female

DRUGS (2)
  1. THALOMID [Suspect]
     Indication: MALIGNANT MELANOMA
     Dosage: 400 MG, QD, ORAL;  UNKNOWN, QD, ORAL
     Route: 048
     Dates: start: 20031209, end: 20040601
  2. THALOMID [Suspect]
     Indication: MALIGNANT MELANOMA
     Dosage: 400 MG, QD, ORAL;  UNKNOWN, QD, ORAL
     Route: 048
     Dates: start: 20040701

REACTIONS (1)
  - DEAFNESS [None]
